FAERS Safety Report 5191842-6 (Version None)
Quarter: 2006Q4

REPORT INFORMATION
  Report Type: 
  Country: None (occurrence: None)
  Receive Date: 20061218
  Receipt Date: 20061207
  Transmission Date: 20070319
  Serious: Yes (Other)
  Sender: FDA-Public Use
  Company Number: HQWYE598107DEC06

PATIENT
  Sex: Male

DRUGS (1)
  1. SOMAC (PANTOPRAZOLE, UNSPEC) [Suspect]
     Indication: GASTROOESOPHAGEAL REFLUX DISEASE
     Dosage: 200 MG

REACTIONS (2)
  - HEPATIC CIRRHOSIS [None]
  - STOMACH DISCOMFORT [None]
